FAERS Safety Report 18631831 (Version 1)
Quarter: 2020Q4

REPORT INFORMATION
  Report Type: Report from Study
  Country: CD (occurrence: CD)
  Receive Date: 20201218
  Receipt Date: 20201218
  Transmission Date: 20210114
  Serious: Yes (Death, Other)
  Sender: FDA-Public Use
  Company Number: CD-CIPLA LTD.-2020CD09303

PATIENT

DRUGS (1)
  1. LOPINAVIR/RITONAVIR [Suspect]
     Active Substance: LOPINAVIR\RITONAVIR
     Indication: PRODUCT USED FOR UNKNOWN INDICATION
     Dosage: UNK
     Route: 065
     Dates: start: 20201201

REACTIONS (4)
  - COVID-19 pneumonia [None]
  - Pulmonary embolism [Unknown]
  - Respiratory distress [None]
  - Cardio-respiratory arrest [Unknown]

NARRATIVE: CASE EVENT DATE: 20201211
